FAERS Safety Report 19212109 (Version 1)
Quarter: 2021Q2

REPORT INFORMATION
  Report Type: Spontaneous
  Country: US (occurrence: US)
  Receive Date: 20210504
  Receipt Date: 20210504
  Transmission Date: 20210717
  Serious: No
  Sender: FDA-Public Use
  Company Number: US-PFIZER INC-2021386045

PATIENT
  Age: 58 Year
  Sex: Female
  Weight: 85.26 kg

DRUGS (7)
  1. VITAMIN D3 [Concomitant]
     Active Substance: CHOLECALCIFEROL
  2. PAROXETINE. [Concomitant]
     Active Substance: PAROXETINE
  3. LEVOTHYROXINE SODIUM. [Concomitant]
     Active Substance: LEVOTHYROXINE SODIUM
  4. IBRANCE [Suspect]
     Active Substance: PALBOCICLIB
     Indication: BREAST CANCER FEMALE
     Dosage: 125 MG, DAILY (21 DAYS)
     Route: 048
  5. LETROZOLE. [Concomitant]
     Active Substance: LETROZOLE
  6. TOZINAMERAN. [Concomitant]
     Active Substance: TOZINAMERAN
  7. CALCIUM CARBONATE. [Concomitant]
     Active Substance: CALCIUM CARBONATE

REACTIONS (1)
  - Rash [Unknown]
